FAERS Safety Report 10411248 (Version 2)
Quarter: 2014Q3

REPORT INFORMATION
  Report Type: Spontaneous
  Country: US (occurrence: US)
  Receive Date: 20140826
  Receipt Date: 20140826
  Transmission Date: 20150326
  Serious: No
  Sender: FDA-Public Use
  Company Number: US-ASTRAZENECA-2014SE21952

PATIENT
  Age: 59 Year
  Sex: Male
  Weight: 110.2 kg

DRUGS (9)
  1. SYMBICORT [Suspect]
     Active Substance: BUDESONIDE\FORMOTEROL FUMARATE DIHYDRATE
     Indication: RESTRICTIVE PULMONARY DISEASE
     Dosage: 160 4.5, 1 PUFF, TWO TIMES A DAY
     Route: 055
     Dates: start: 2011
  2. SYMBICORT [Suspect]
     Active Substance: BUDESONIDE\FORMOTEROL FUMARATE DIHYDRATE
     Indication: BRONCHIAL DISORDER
     Dosage: 160 4.5, 1 PUFF, TWO TIMES A DAY
     Route: 055
     Dates: start: 2011
  3. PREDNISONE. [Concomitant]
     Active Substance: PREDNISONE
     Indication: MUCOSAL INFLAMMATION
     Route: 048
  4. XOLAIR [Concomitant]
     Active Substance: OMALIZUMAB
     Indication: ASTHMA
     Route: 058
  5. ALBUTEROL SULFATE. [Concomitant]
     Active Substance: ALBUTEROL SULFATE
     Indication: WHEEZING
     Dosage: 2 PUFF 4-6TIMES PRN
     Route: 055
  6. ALVESCO [Concomitant]
     Active Substance: CICLESONIDE
     Indication: STEROID THERAPY
     Dosage: 1 PUFF
     Route: 055
  7. DAPNEBS [Concomitant]
     Indication: OBSTRUCTIVE AIRWAYS DISORDER
     Dosage: BID
     Route: 055
  8. QNASL [Concomitant]
     Active Substance: BECLOMETHASONE DIPROPIONATE
     Indication: NASAL DECONGESTION THERAPY
     Dosage: 1PUFF EACH NOSTRIL BID
     Route: 055
  9. BRIO [Concomitant]
     Indication: WHEEZING
     Dosage: 160 MCG DAILY
     Route: 055

REACTIONS (6)
  - Intentional product misuse [Not Recovered/Not Resolved]
  - Off label use [Unknown]
  - Body height decreased [Not Recovered/Not Resolved]
  - Asthma [Not Recovered/Not Resolved]
  - Oral candidiasis [Recovered/Resolved]
  - Fibrosis [Not Recovered/Not Resolved]

NARRATIVE: CASE EVENT DATE: 2011
